FAERS Safety Report 23211137 (Version 1)
Quarter: 2023Q4

REPORT INFORMATION
  Report Type: Report from Study
  Country: ES (occurrence: ES)
  Receive Date: 20231121
  Receipt Date: 20231121
  Transmission Date: 20240110
  Serious: Yes (Other)
  Sender: FDA-Public Use
  Company Number: ES-TEVA-2023-ES-2947527

PATIENT

DRUGS (4)
  1. OXALIPLATIN [Suspect]
     Active Substance: OXALIPLATIN
     Indication: Ductal adenocarcinoma of pancreas
     Dosage: 85 MG/M2, SCHEDULE TO RECEIVED 3-7 CYCLES OF BIWEEKLY NEOADJUVANT MODIFIED FOLFIRINOX -IN 2 HOURS
     Route: 050
  2. LEUCOVORIN [Suspect]
     Active Substance: LEUCOVORIN\LEUCOVORIN CALCIUM
     Indication: Ductal adenocarcinoma of pancreas
     Dosage: 400 MG/M2, SCHEDULE TO RECEIVED 3-7 CYCLES OF BIWEEKLY NEOADJUVANT MODIFIED FOLFIRINOX -IN
     Route: 050
  3. IRINOTECAN [Suspect]
     Active Substance: IRINOTECAN
     Indication: Ductal adenocarcinoma of pancreas
     Dosage: 165 MG/M2, SCHEDULE TO RECEIVED 3-7 CYCLES OF BIWEEKLY NEOADJUVANT MODIFIED FOLFIRINOX -IN
     Route: 050
  4. FLUOROURACIL [Suspect]
     Active Substance: FLUOROURACIL
     Indication: Ductal adenocarcinoma of pancreas
     Dosage: 3200 MG/M2, SCHEDULE TO RECEIVED 3-7 CYCLES OF BIWEEKLY NEOADJUVANT MODIFIED FOLFIRINOX -IN 46
     Route: 050

REACTIONS (1)
  - Rash [Unknown]
